FAERS Safety Report 15885152 (Version 1)
Quarter: 2019Q1

REPORT INFORMATION
  Report Type: Spontaneous
  Country: ZA (occurrence: ZA)
  Receive Date: 20190129
  Receipt Date: 20190129
  Transmission Date: 20190417
  Serious: Yes (Other)
  Sender: FDA-Public Use
  Company Number: ZA-GLAXOSMITHKLINE-ZA2019GSK012979

PATIENT
  Sex: Male
  Weight: 21 kg

DRUGS (2)
  1. LAMICTIN [Suspect]
     Active Substance: LAMOTRIGINE
     Dosage: 75 MG, QD, AT NIGHT
     Route: 048
  2. LAMICTIN [Suspect]
     Active Substance: LAMOTRIGINE
     Indication: EPILEPSY
     Dosage: 50 MG, QD, AT MORNING
     Route: 048

REACTIONS (4)
  - Polycythaemia [Recovering/Resolving]
  - Salt craving [Unknown]
  - Renal tubular acidosis [Unknown]
  - Abnormal behaviour [Unknown]
